FAERS Safety Report 20588859 (Version 1)
Quarter: 2022Q1

REPORT INFORMATION
  Report Type: Spontaneous
  Country: US (occurrence: US)
  Receive Date: 20220314
  Receipt Date: 20220314
  Transmission Date: 20220423
  Serious: Yes (Other)
  Sender: FDA-Public Use
  Company Number: US-MLMSERVICE-20220224-3397395-1

PATIENT
  Age: 42 Year
  Sex: Male

DRUGS (1)
  1. BUPIVACAINE [Suspect]
     Active Substance: BUPIVACAINE
     Indication: Anaesthesia
     Dosage: UNKNOWN
     Route: 065

REACTIONS (4)
  - Normocytic anaemia [Recovering/Resolving]
  - Haemolysis [Recovering/Resolving]
  - Methaemoglobinaemia [Recovering/Resolving]
  - Spherocytic anaemia [Recovering/Resolving]
